FAERS Safety Report 10073770 (Version 1)
Quarter: 2014Q2

REPORT INFORMATION
  Report Type: Spontaneous
  Country: US (occurrence: US)
  Receive Date: 20140411
  Receipt Date: 20140411
  Transmission Date: 20141212
  Serious: No
  Sender: FDA-Public Use
  Company Number: US-TEVA-475437USA

PATIENT
  Sex: Female

DRUGS (2)
  1. PLAN B ONE-STEP [Suspect]
     Indication: POST COITAL CONTRACEPTION
     Dosage: 1.5 MILLIGRAM DAILY;
     Route: 048
     Dates: start: 20140323, end: 20140323
  2. MAGNESIUM [Suspect]
     Indication: CONSTIPATION

REACTIONS (3)
  - Constipation [Recovered/Resolved]
  - Diarrhoea [Unknown]
  - Abdominal distension [Not Recovered/Not Resolved]
